FAERS Safety Report 13918204 (Version 2)
Quarter: 2018Q3

REPORT INFORMATION
  Report Type: Spontaneous
  Country: US (occurrence: US)
  Receive Date: 20170829
  Receipt Date: 20180926
  Transmission Date: 20181010
  Serious: Yes (Hospitalization, Other)
  Sender: FDA-Public Use
  Company Number: US-SA-2017SA029297

PATIENT
  Age: 19 Year
  Sex: Female

DRUGS (1)
  1. FABRAZYME [Suspect]
     Active Substance: AGALSIDASE BETA
     Indication: FABRY^S DISEASE
     Dosage: UNK UNK,UNK
     Route: 041
     Dates: start: 20161005, end: 20161019

REACTIONS (2)
  - Hospitalisation [Unknown]
  - Exposure during pregnancy [Unknown]
